FAERS Safety Report 9214270 (Version 6)
Quarter: 2013Q2

REPORT INFORMATION
  Report Type: Report from Study
  Country: IT (occurrence: IT)
  Receive Date: 20130405
  Receipt Date: 20130618
  Transmission Date: 20140414
  Serious: Yes (Life-Threatening)
  Sender: FDA-Public Use
  Company Number: IT-BAXTER-2013BAX012165

PATIENT
  Age: 6 Year
  Sex: Male
  Weight: 25 kg

DRUGS (27)
  1. HOLOXAN [Suspect]
     Indication: NEOPLASM MALIGNANT
     Route: 042
     Dates: start: 20130318
  2. HOLOXAN [Suspect]
     Route: 042
     Dates: start: 20130319, end: 20130319
  3. CYCLOPHOSPHAMIDE FOR INJECTION, USP [Suspect]
     Indication: NEOPLASM MALIGNANT
     Route: 042
     Dates: start: 20130409
  4. CYCLOPHOSPHAMIDE FOR INJECTION, USP [Suspect]
     Route: 042
     Dates: start: 20130510
  5. VINCRISTINE [Suspect]
     Indication: NEOPLASM MALIGNANT
     Route: 042
     Dates: start: 20130318, end: 20130325
  6. VINCRISTINE [Suspect]
     Route: 042
     Dates: start: 20130409
  7. VINCRISTINE [Suspect]
     Route: 042
     Dates: start: 20130509
  8. DOXORUBICIN HYDROCHLORIDE [Suspect]
     Indication: NEOPLASM MALIGNANT
     Route: 042
     Dates: start: 20130318
  9. DOXORUBICIN HYDROCHLORIDE [Suspect]
     Route: 042
     Dates: start: 20130319
  10. DOXORUBICIN HYDROCHLORIDE [Suspect]
     Route: 042
     Dates: start: 20130510
  11. DACTINOMYCIN [Suspect]
     Indication: NEOPLASM MALIGNANT
     Route: 042
     Dates: start: 20130318
  12. DACTINOMYCIN [Suspect]
     Route: 042
     Dates: start: 20130509
  13. G-CSF [Concomitant]
     Indication: PRODUCT USED FOR UNKNOWN INDICATION
     Route: 065
     Dates: start: 20130325, end: 20130330
  14. FUROSEMIDE [Concomitant]
     Indication: PRODUCT USED FOR UNKNOWN INDICATION
     Route: 065
     Dates: start: 20130325, end: 20130327
  15. MEROPENEM [Concomitant]
     Indication: PRODUCT USED FOR UNKNOWN INDICATION
     Route: 065
     Dates: start: 20130322, end: 20130325
  16. MEROPENEM [Concomitant]
     Route: 065
     Dates: start: 20130325, end: 20130326
  17. MEROPENEM [Concomitant]
     Route: 065
     Dates: start: 20130326, end: 20130416
  18. TECOPLANINE [Concomitant]
     Indication: PRODUCT USED FOR UNKNOWN INDICATION
     Route: 065
     Dates: start: 20130322, end: 20130402
  19. OMEPRAZOLE [Concomitant]
     Indication: PRODUCT USED FOR UNKNOWN INDICATION
     Route: 065
     Dates: start: 20130322
  20. OMEPRAZOLE [Concomitant]
     Route: 065
     Dates: start: 20130324
  21. MORPHINE SULFATE [Concomitant]
     Indication: PRODUCT USED FOR UNKNOWN INDICATION
     Route: 065
     Dates: start: 20130325, end: 20130326
  22. TRAMADOL [Concomitant]
     Indication: PRODUCT USED FOR UNKNOWN INDICATION
     Route: 065
     Dates: start: 20130314, end: 20130324
  23. FENOLDOPAM [Concomitant]
     Indication: PRODUCT USED FOR UNKNOWN INDICATION
     Route: 065
     Dates: start: 20130324, end: 20130402
  24. OXYBUTYNIN HYDROCHLORIDE [Concomitant]
     Indication: PRODUCT USED FOR UNKNOWN INDICATION
     Route: 065
     Dates: start: 20130310, end: 20130324
  25. FENTANYL CITRATE [Concomitant]
     Indication: PRODUCT USED FOR UNKNOWN INDICATION
     Route: 065
     Dates: start: 20130324
  26. MIDAZOLAM [Concomitant]
     Indication: PRODUCT USED FOR UNKNOWN INDICATION
     Route: 065
     Dates: start: 20130324
  27. ALLOPURINOL [Concomitant]
     Indication: PRODUCT USED FOR UNKNOWN INDICATION
     Route: 065
     Dates: start: 20130528

REACTIONS (5)
  - Ileus paralytic [Recovered/Resolved]
  - Renal failure acute [Recovering/Resolving]
  - Hypokalaemia [Recovered/Resolved]
  - Hypertension [Recovering/Resolving]
  - Proteinuria [Recovering/Resolving]
